FAERS Safety Report 9170529 (Version 2)
Quarter: 2013Q2

REPORT INFORMATION
  Report Type: Spontaneous
  Country: US (occurrence: None)
  Receive Date: 20130307
  Receipt Date: 20130402
  Transmission Date: 20140414
  Serious: Yes (Hospitalization, Other)
  Sender: FDA-Public Use
  Company Number: 13-00801

PATIENT
  Age: 57 Year
  Sex: Female

DRUGS (3)
  1. ASTHMANEFRIN [Suspect]
     Indication: ASTHMA
     Dosage: 1 INHALATION ONCE, 054
  2. ALBUTEROL SULFATE INHALATION SOLUTION [Concomitant]
  3. OXYGEN [Concomitant]

REACTIONS (4)
  - Pertussis [None]
  - Pyrexia [None]
  - Dizziness [None]
  - Chest pain [None]
